FAERS Safety Report 4977642-8 (Version None)
Quarter: 2006Q2

REPORT INFORMATION
  Report Type: 
  Country: None (occurrence: None)
  Receive Date: 20060420
  Receipt Date: 20051024
  Transmission Date: 20061013
  Serious: No
  Sender: FDA-Public Use
  Company Number: US-GLAXOSMITHKLINE-A0579382A

PATIENT
  Age: 71 Year
  Sex: Male

DRUGS (1)
  1. LITHIUM CARBONATE [Suspect]
     Dosage: 300MG THREE TIMES PER DAY
     Route: 048

REACTIONS (1)
  - ANGER [None]
